FAERS Safety Report 17537345 (Version 1)
Quarter: 2020Q1

REPORT INFORMATION
  Report Type: Spontaneous
  Country: US (occurrence: US)
  Receive Date: 20200313
  Receipt Date: 20200313
  Transmission Date: 20200409
  Serious: No
  Sender: FDA-Public Use
  Company Number: US-AKRON, INC.-2081596

PATIENT
  Sex: Female

DRUGS (2)
  1. TIMOLOL MALEATE. [Suspect]
     Active Substance: TIMOLOL MALEATE
     Route: 047
  2. DORZOLAMIDE HCL OPHTHALMIC SOLUTION [Suspect]
     Active Substance: DORZOLAMIDE HYDROCHLORIDE
     Route: 047

REACTIONS (1)
  - Alopecia [Recovering/Resolving]
